FAERS Safety Report 25923208 (Version 1)
Quarter: 2025Q4

REPORT INFORMATION
  Report Type: Spontaneous
  Country: US (occurrence: US)
  Receive Date: 20251015
  Receipt Date: 20251015
  Transmission Date: 20260117
  Serious: No
  Sender: CHATTEM
  Company Number: US-OPELLA-2025OHG029873

PATIENT
  Age: 38 Year
  Sex: Male

DRUGS (4)
  1. FEXOFENADINE [Suspect]
     Active Substance: FEXOFENADINE HYDROCHLORIDE
     Indication: Alopecia areata
     Route: 048
  2. PREDNISONE [Concomitant]
     Active Substance: PREDNISONE
     Indication: Alopecia areata
     Route: 048
  3. BETAMETHASONE [Concomitant]
     Active Substance: BETAMETHASONE
     Indication: Alopecia areata
     Route: 030
  4. TRIAMCINOLONE [Concomitant]
     Active Substance: TRIAMCINOLONE
     Indication: Alopecia areata
     Route: 026

REACTIONS (3)
  - Off label use [Unknown]
  - Drug ineffective for unapproved indication [Unknown]
  - No adverse event [Unknown]
